FAERS Safety Report 5755626-X (Version None)
Quarter: 2008Q2

REPORT INFORMATION
  Report Type: 
  Country: None (occurrence: None)
  Receive Date: 20080602
  Receipt Date: 20080527
  Transmission Date: 20081010
  Serious: Yes (Other)
  Sender: FDA-Public Use
  Company Number: IE-MERCK-0805GBR00147

PATIENT
  Age: 68 Year
  Sex: Female

DRUGS (4)
  1. FOSAMAX [Suspect]
     Indication: OSTEOPENIA
     Route: 048
  2. LEVOTHYROXINE SODIUM [Concomitant]
     Route: 065
  3. BENDROFLUMETHIAZIDE AND POTASSIUM CHLORIDE [Concomitant]
     Route: 065
  4. FLUTICASONE PROPIONATE AND SALMETEROL XINAFOATE [Concomitant]
     Route: 065

REACTIONS (3)
  - PRURITUS [None]
  - SKIN EXFOLIATION [None]
  - SKIN IRRITATION [None]
